FAERS Safety Report 9013940 (Version 1)
Quarter: 2013Q1

REPORT INFORMATION
  Report Type: Spontaneous
  Country: US (occurrence: None)
  Receive Date: 20130109
  Receipt Date: 20130109
  Transmission Date: 20140127
  Serious: Yes (Other)
  Sender: FDA-Public Use
  Company Number: None

PATIENT
  Age: 12 Year
  Sex: Male

DRUGS (1)
  1. NUTROPIN AQ NUSPIN, 20 MG [Suspect]
     Indication: GROWTH HORMONE DEFICIENCY
     Dosage: 6 DAYS A WEEK.
     Dates: start: 20110408

REACTIONS (1)
  - Pain [None]
